FAERS Safety Report 23339070 (Version 1)
Quarter: 2023Q4

REPORT INFORMATION
  Report Type: Spontaneous
  Country: GB (occurrence: GB)
  Receive Date: 20231226
  Receipt Date: 20231226
  Transmission Date: 20240110
  Serious: Yes (Hospitalization, Other)
  Sender: FDA-Public Use
  Company Number: GB-AMGEN-GBRSP2023219935

PATIENT
  Age: 46 Year
  Sex: Male

DRUGS (5)
  1. CARFILZOMIB [Suspect]
     Active Substance: CARFILZOMIB
     Indication: Plasma cell myeloma
     Dosage: 120 MG AT AN UNSPECIFIED FREQUENCY
     Route: 065
     Dates: end: 20231127
  2. DEXTROSE [Suspect]
     Active Substance: DEXTROSE\DEXTROSE MONOHYDRATE
     Indication: Medication dilution
     Dosage: 100 ML OF GLUCOSE 5% AT AN UNSPECIFIED FREQUENCY
     Route: 042
  3. WATER FOR INJECTION [Suspect]
     Active Substance: WATER
     Indication: Medication dilution
     Dosage: AT AN UNSPECIFIED DOSE AND FREQUENCY
     Route: 065
     Dates: end: 20231127
  4. APIXABAN [Suspect]
     Active Substance: APIXABAN
     Indication: Plasma cell myeloma
     Dosage: UNK, 120 MG AT AN UNSPECIFIED FREQUENCY
     Route: 042
  5. SODIUM CHLORIDE [Suspect]
     Active Substance: SODIUM CHLORIDE
     Indication: Catheter management
     Dosage: UNK, UNK
     Route: 042

REACTIONS (5)
  - Plasma cell myeloma [Unknown]
  - Superficial vein thrombosis [Unknown]
  - Peripheral swelling [Unknown]
  - Feeling hot [Unknown]
  - Infusion site erythema [Unknown]
